FAERS Safety Report 6750429-1 (Version None)
Quarter: 2010Q2

REPORT INFORMATION
  Report Type: 
  Country: None (occurrence: None)
  Receive Date: 20100601
  Receipt Date: 20100518
  Transmission Date: 20101027
  Serious: Yes (Other)
  Sender: FDA-Public Use
  Company Number: US-ELI_LILLY_AND_COMPANY-US201005005242

PATIENT
  Sex: Female

DRUGS (9)
  1. CYMBALTA [Suspect]
     Indication: DEPRESSION
     Dosage: 60 MG, DAILY (1/D)
     Dates: start: 20061001, end: 20090101
  2. CYMBALTA [Suspect]
     Dosage: 30 MG, EACH MORNING
     Dates: start: 20090101, end: 20100101
  3. CYMBALTA [Suspect]
     Dosage: 30 MG, EACH EVENING
  4. CYMBALTA [Suspect]
     Dosage: 60 MG, EACH MORNING
  5. CYMBALTA [Suspect]
     Dosage: 90 MG, EACH MORNING
     Dates: end: 20100101
  6. SYNTHROID [Concomitant]
  7. VERAPAMIL [Concomitant]
  8. PRILOSEC [Concomitant]
  9. FLUOXETINE [Concomitant]
     Dates: start: 20100101

REACTIONS (10)
  - ANXIETY [None]
  - DEATH OF RELATIVE [None]
  - DEPRESSION [None]
  - DRUG INEFFECTIVE [None]
  - MALABSORPTION [None]
  - OBESITY SURGERY [None]
  - ORAL ADMINISTRATION COMPLICATION [None]
  - ROTATOR CUFF REPAIR [None]
  - STRESS AT WORK [None]
  - UPPER LIMB FRACTURE [None]
